FAERS Safety Report 5526544-7 (Version None)
Quarter: 2007Q4

REPORT INFORMATION
  Report Type: 
  Country: None (occurrence: None)
  Receive Date: 20071121
  Receipt Date: 20071121
  Transmission Date: 20080405
  Serious: Yes (Hospitalization)
  Sender: FDA-Public Use
  Company Number: None

PATIENT
  Sex: Female
  Weight: 57 kg

DRUGS (2)
  1. ALLOPURINOL [Suspect]
     Indication: GOUT
     Dosage: PO
     Route: 048
  2. AMOXICILLIN [Suspect]
     Indication: URINARY TRACT INFECTION
     Dosage: PO
     Route: 048

REACTIONS (4)
  - IMPAIRED HEALING [None]
  - RASH [None]
  - SKIN EXFOLIATION [None]
  - SKIN LESION [None]
